FAERS Safety Report 10266279 (Version 1)
Quarter: 2014Q2

REPORT INFORMATION
  Report Type: Spontaneous
  Country: US (occurrence: US)
  Receive Date: 20140627
  Receipt Date: 20140627
  Transmission Date: 20141212
  Serious: No
  Sender: FDA-Public Use
  Company Number: US-ASTRAZENECA-2013SE91509

PATIENT
  Sex: Male

DRUGS (2)
  1. SEROQUEL [Suspect]
     Route: 048
     Dates: start: 2007
  2. SEROQUEL [Suspect]
     Route: 048

REACTIONS (7)
  - Sleep terror [Not Recovered/Not Resolved]
  - Middle insomnia [Not Recovered/Not Resolved]
  - Feeling abnormal [Not Recovered/Not Resolved]
  - Adverse drug reaction [Not Recovered/Not Resolved]
  - Abnormal dreams [Not Recovered/Not Resolved]
  - Dyskinesia [Not Recovered/Not Resolved]
  - Palpitations [Not Recovered/Not Resolved]
